FAERS Safety Report 24450003 (Version 1)
Quarter: 2024Q4

REPORT INFORMATION
  Report Type: Spontaneous
  Country: US (occurrence: US)
  Receive Date: 20241017
  Receipt Date: 20241017
  Transmission Date: 20250114
  Serious: Yes (Other)
  Sender: BRISTOL-MYERS SQUIBB COMPANY
  Company Number: US-BRISTOL-MYERS SQUIBB COMPANY-2024-158776

PATIENT
  Age: 6 Decade
  Sex: Male

DRUGS (4)
  1. LENALIDOMIDE [Suspect]
     Active Substance: LENALIDOMIDE
     Indication: Rosai-Dorfman syndrome
     Dosage: DAILY FOR 3 WEEKS BY 1 WEEK OFF THERAPY
  2. LENALIDOMIDE [Suspect]
     Active Substance: LENALIDOMIDE
  3. DEXAMETHASONE [Concomitant]
     Active Substance: DEXAMETHASONE
     Indication: Rosai-Dorfman syndrome
     Dosage: MONDAY TO FRIDAY WEEKLY WAS INITIATED
  4. RITUXIMAB [Concomitant]
     Active Substance: RITUXIMAB
     Indication: Rosai-Dorfman syndrome

REACTIONS (3)
  - Histoplasmosis disseminated [Recovering/Resolving]
  - Neutropenia [Not Recovered/Not Resolved]
  - Off label use [Unknown]
